FAERS Safety Report 25119594 (Version 2)
Quarter: 2025Q2

REPORT INFORMATION
  Report Type: Spontaneous
  Country: US (occurrence: US)
  Receive Date: 20250325
  Receipt Date: 20250418
  Transmission Date: 20250716
  Serious: Yes (Hospitalization)
  Sender: LEXICON PHARMACEUTICALS
  Company Number: US-LEX-000708

PATIENT
  Age: 81 Year
  Sex: Male

DRUGS (1)
  1. INPEFA [Suspect]
     Active Substance: SOTAGLIFLOZIN
     Indication: Left ventricular failure
     Route: 048
     Dates: start: 20240904

REACTIONS (1)
  - Device inappropriate shock delivery [Unknown]

NARRATIVE: CASE EVENT DATE: 20250304
